FAERS Safety Report 5334216-7 (Version None)
Quarter: 2007Q2

REPORT INFORMATION
  Report Type: 
  Country: None (occurrence: None)
  Receive Date: 20070525
  Receipt Date: 20070227
  Transmission Date: 20071010
  Serious: No
  Sender: FDA-Public Use
  Company Number: A0628457A

PATIENT
  Age: 51 Year
  Sex: Female

DRUGS (3)
  1. BACTROBAN [Suspect]
     Indication: DRUG USE FOR UNKNOWN INDICATION
     Route: 061
     Dates: start: 19860101, end: 20061108
  2. BECONASE AQ [Concomitant]
  3. TERAZOL 7 [Concomitant]

REACTIONS (2)
  - MALAISE [None]
  - PHARMACEUTICAL PRODUCT COMPLAINT [None]
